FAERS Safety Report 22349990 (Version 2)
Quarter: 2023Q2

REPORT INFORMATION
  Report Type: Report from Study
  Country: EG (occurrence: EG)
  Receive Date: 20230522
  Receipt Date: 20230530
  Transmission Date: 20230722
  Serious: Yes (Other)
  Sender: FDA-Public Use
  Company Number: EG-002147023-NVSC2023EG115477

PATIENT
  Age: 36 Year
  Sex: Male

DRUGS (3)
  1. GILENYA [Suspect]
     Active Substance: FINGOLIMOD HYDROCHLORIDE
     Indication: Multiple sclerosis
     Dosage: 0.5 MG, QD (STARTED 2 YEARS AND HALF OR 3 YEARS AGO AS PER PATIENTS WORDS)
     Route: 048
     Dates: end: 20220101
  2. BRINO [Concomitant]
     Indication: Product used for unknown indication
     Dosage: UNK
     Route: 065
  3. BISOPROLOL FUMARATE [Concomitant]
     Active Substance: BISOPROLOL FUMARATE
     Indication: Stent placement
     Dosage: UNK, QD
     Route: 065
     Dates: start: 2022

REACTIONS (8)
  - Coronary artery disease [Unknown]
  - Cardiac discomfort [Unknown]
  - Hypothyroidism [Not Recovered/Not Resolved]
  - Disturbance in attention [Not Recovered/Not Resolved]
  - Laziness [Not Recovered/Not Resolved]
  - Blood cholesterol increased [Unknown]
  - Fatigue [Not Recovered/Not Resolved]
  - Haemophilia [Unknown]

NARRATIVE: CASE EVENT DATE: 20220101
